FAERS Safety Report 6934800-0 (Version None)
Quarter: 2010Q3

REPORT INFORMATION
  Report Type: 
  Country: None (occurrence: None)
  Receive Date: 20100820
  Receipt Date: 20100805
  Transmission Date: 20110219
  Serious: Yes (Other)
  Sender: FDA-Public Use
  Company Number: PHHY2010US51876

PATIENT
  Sex: Female

DRUGS (1)
  1. RECLAST [Suspect]
     Dosage: UNK

REACTIONS (2)
  - FALL [None]
  - UPPER LIMB FRACTURE [None]
